FAERS Safety Report 9111694 (Version 1)
Quarter: 2013Q1

REPORT INFORMATION
  Report Type: Spontaneous
  Country: US (occurrence: US)
  Receive Date: 20130219
  Receipt Date: 20130219
  Transmission Date: 20140127
  Serious: No
  Sender: FDA-Public Use
  Company Number: US-BRISTOL-MYERS SQUIBB COMPANY-16660797

PATIENT
  Age: 57 Year
  Sex: Female
  Weight: 65.76 kg

DRUGS (7)
  1. ORENCIA [Suspect]
     Indication: RHEUMATOID ARTHRITIS
     Dosage: DOSE:  125MG/ML?PRESCRIPTION:741636-05?LAST DATE OF INJECTION:27MAY2012
     Route: 058
  2. METHOTREXATE [Concomitant]
  3. PLAQUENIL [Concomitant]
  4. ATENOLOL [Concomitant]
  5. CAPTOPRIL [Concomitant]
  6. MICARDIS [Concomitant]
  7. LIPITOR [Concomitant]

REACTIONS (2)
  - Ear infection [Recovered/Resolved]
  - Drug dose omission [Unknown]
